FAERS Safety Report 21576422 (Version 1)
Quarter: 2022Q4

REPORT INFORMATION
  Report Type: Spontaneous
  Country: PL (occurrence: PL)
  Receive Date: 20221110
  Receipt Date: 20221110
  Transmission Date: 20230112
  Serious: Yes (Other)
  Sender: FDA-Public Use
  Company Number: PL-AMGEN-POLSP2022185179

PATIENT
  Age: 35 Year
  Sex: Female
  Weight: 71 kg

DRUGS (7)
  1. OXALIPLATIN [Suspect]
     Active Substance: OXALIPLATIN
     Indication: Colorectal cancer
     Dosage: UNK UNK, CYCLIC
     Route: 065
     Dates: start: 20210614, end: 2021
  2. FLUOROURACIL [Suspect]
     Active Substance: FLUOROURACIL
     Indication: Colorectal cancer
     Dosage: UNK UNK, CYCLIC
     Route: 065
     Dates: start: 20210614
  3. FLUOROURACIL [Suspect]
     Active Substance: FLUOROURACIL
     Dosage: UNK UNK, CYCLIC
     Route: 065
     Dates: start: 20211028, end: 202112
  4. LEUCOVORIN [Suspect]
     Active Substance: LEUCOVORIN
     Indication: Colorectal cancer
     Dosage: UNK UNK, CYCLIC
     Route: 065
     Dates: start: 20210614
  5. LEUCOVORIN [Suspect]
     Active Substance: LEUCOVORIN
     Dosage: UNK UNK, CYCLIC
     Route: 065
     Dates: start: 20211028, end: 202112
  6. PANITUMUMAB [Suspect]
     Active Substance: PANITUMUMAB
     Indication: Colorectal cancer
     Dosage: 426 MG, CYCLIC
     Route: 065
     Dates: start: 20211028
  7. IRINOTECAN [Suspect]
     Active Substance: IRINOTECAN
     Indication: Colorectal cancer
     Dosage: UNK UNK, CYCLIC
     Route: 065
     Dates: start: 20211028

REACTIONS (10)
  - Metastases to ovary [Unknown]
  - Thrombocytopenia [Unknown]
  - Rash pustular [Recovered/Resolved]
  - Pruritus [Recovered/Resolved]
  - Eating disorder [Recovered/Resolved]
  - Abdominal pain [Recovered/Resolved]
  - Vomiting [Recovered/Resolved]
  - Nausea [Recovered/Resolved]
  - Transaminases increased [Recovering/Resolving]
  - Therapy partial responder [Unknown]

NARRATIVE: CASE EVENT DATE: 20210101
